FAERS Safety Report 5109741-4 (Version None)
Quarter: 2006Q3

REPORT INFORMATION
  Report Type: 
  Country: None (occurrence: None)
  Receive Date: 20060918
  Receipt Date: 20060726
  Transmission Date: 20061208
  Serious: Yes (Hospitalization)
  Sender: FDA-Public Use
  Company Number: 229879

PATIENT
  Age: 51 Year
  Sex: Male
  Weight: 72.2 kg

DRUGS (14)
  1. AVASTIN [Suspect]
     Indication: COLON CANCER
     Dosage: 362.5 MG, INTRAVENOUS
     Route: 042
     Dates: start: 20050601
  2. OXALIPLATIN [Suspect]
     Indication: COLON CANCER
     Dosage: 165 MG, Q2W, INTRAVENOUS
     Route: 042
     Dates: start: 20050601
  3. LEUCOVORIN             (LEUCOVORIN CALCIUM) [Suspect]
     Indication: COLON CANCER
     Dosage: 350 MG, Q2W, INTRAVENOUS
     Route: 042
     Dates: start: 20050601
  4. FLUOROURACIL [Suspect]
     Indication: COLON CANCER
     Dosage: SEE IMAGE
     Route: 042
     Dates: start: 20050601
  5. FRAGMIN [Concomitant]
  6. CYCLIZINE [Concomitant]
  7. METRONIDAZOLE [Concomitant]
  8. DIAZEPAM [Concomitant]
  9. CEFUROXIME [Concomitant]
  10. THIAMIN (THIAMINE HYDROCHLORIDE) [Concomitant]
  11. VITAMIN B COMPLEX CAP [Concomitant]
  12. PENTASA [Concomitant]
  13. OMEPRAZOLE [Concomitant]
  14. TRAMADOL HCL [Concomitant]

REACTIONS (4)
  - HAEMOGLOBIN DECREASED [None]
  - NEUTROPENIC SEPSIS [None]
  - PLATELET COUNT INCREASED [None]
  - WHITE BLOOD CELL COUNT DECREASED [None]
